FAERS Safety Report 23013978 (Version 3)
Quarter: 2023Q4

REPORT INFORMATION
  Report Type: Spontaneous
  Country: US (occurrence: US)
  Receive Date: 20231001
  Receipt Date: 20231115
  Transmission Date: 20240109
  Serious: No
  Sender: FDA-Public Use
  Company Number: US-BRISTOL-MYERS SQUIBB COMPANY-2023-139092

PATIENT
  Age: 87 Year
  Sex: Female

DRUGS (2)
  1. SPRYCEL [Suspect]
     Active Substance: DASATINIB
     Indication: Chronic myeloid leukaemia
     Dosage: FREQUENCY: TAKE 1 TABLET BY MOUTH ONCE DAILY.
     Route: 048
     Dates: start: 2023, end: 2023
  2. ELIQUIS [Suspect]
     Active Substance: APIXABAN
     Indication: Product used for unknown indication

REACTIONS (5)
  - Dyspnoea [Unknown]
  - Drug intolerance [Unknown]
  - Palpitations [Unknown]
  - Peripheral swelling [Unknown]
  - Fluid retention [Unknown]
